FAERS Safety Report 6414556-0 (Version None)
Quarter: 2009Q4

REPORT INFORMATION
  Report Type: 
  Country: None (occurrence: None)
  Receive Date: 20091026
  Receipt Date: 20091013
  Transmission Date: 20100525
  Serious: Yes (Other)
  Sender: FDA-Public Use
  Company Number: NL-ELI_LILLY_AND_COMPANY-NL200805005177

PATIENT
  Sex: Female

DRUGS (5)
  1. ZYPREXA [Suspect]
     Indication: DELUSIONAL DISORDER, PERSECUTORY TYPE
     Dosage: 20 MG, DAILY (1/D)
     Route: 048
     Dates: start: 20040101, end: 20050101
  2. ZYPREXA [Suspect]
     Dosage: 15 MG, DAILY (1/D)
     Route: 048
     Dates: start: 20050101, end: 20080101
  3. ZYPREXA [Suspect]
     Dosage: 5 MG, DAILY (1/D)
     Route: 048
     Dates: start: 20080101, end: 20080512
  4. ZYPREXA [Suspect]
     Dosage: 10 MG, DAILY (1/D)
     Route: 048
     Dates: start: 20080512, end: 20090101
  5. ZYPREXA [Suspect]
     Dosage: 20 MG, UNKNOWN
     Route: 065
     Dates: start: 20090101

REACTIONS (4)
  - DRUG EXPOSURE DURING PREGNANCY [None]
  - PSYCHOTIC DISORDER [None]
  - STRESS AT WORK [None]
  - UTERINE HAEMORRHAGE [None]
